FAERS Safety Report 7971089-8 (Version None)
Quarter: 2011Q4

REPORT INFORMATION
  Report Type: 
  Country: None (occurrence: None)
  Receive Date: 20111212
  Receipt Date: 20111212
  Transmission Date: 20120403
  Serious: Yes (Life-Threatening, Hospitalization)
  Sender: FDA-Public Use
  Company Number: None

PATIENT
  Age: 44 Year
  Sex: Male
  Weight: 92.986 kg

DRUGS (4)
  1. TRAMADOL HCL [Suspect]
     Indication: BACK PAIN
     Dosage: 100 MG
     Route: 048
     Dates: start: 20110806, end: 20110810
  2. TRAMADOL HCL [Suspect]
     Indication: PAIN IN EXTREMITY
     Dosage: 100 MG
     Route: 048
     Dates: start: 20110806, end: 20110810
  3. LYRICA [Concomitant]
     Indication: PAIN IN EXTREMITY
     Dosage: 150 MG
     Route: 048
     Dates: start: 20110806, end: 20110806
  4. LYRICA [Concomitant]
     Indication: BACK PAIN
     Dosage: 150 MG
     Route: 048
     Dates: start: 20110806, end: 20110806

REACTIONS (12)
  - UNRESPONSIVE TO STIMULI [None]
  - INCOHERENT [None]
  - MANIA [None]
  - THOUGHT BLOCKING [None]
  - HALLUCINATION [None]
  - PSYCHOTIC DISORDER [None]
  - AMNESIA [None]
  - NERVOUS SYSTEM DISORDER [None]
  - RESPIRATORY ARREST [None]
  - BRAIN INJURY [None]
  - CATATONIA [None]
  - COMMUNICATION DISORDER [None]
